FAERS Safety Report 6061026-8 (Version None)
Quarter: 2009Q1

REPORT INFORMATION
  Report Type: 
  Country: None (occurrence: None)
  Receive Date: 20090202
  Receipt Date: 20090121
  Transmission Date: 20090719
  Serious: Yes (Hospitalization)
  Sender: FDA-Public Use
  Company Number: ES-JNJFOC-20090105925

PATIENT
  Age: 39 Year
  Sex: Female

DRUGS (3)
  1. INVEGA [Suspect]
     Indication: SCHIZOPHRENIA
     Route: 048
  2. AKINETON [Suspect]
     Indication: EXTRAPYRAMIDAL DISORDER
     Route: 048
  3. LORAZEPAM [Concomitant]
     Indication: SLEEP DISORDER
     Route: 048

REACTIONS (4)
  - CONVULSION [None]
  - DRY MOUTH [None]
  - EXTRAPYRAMIDAL DISORDER [None]
  - HYPONATRAEMIA [None]
